FAERS Safety Report 7494194-1 (Version None)
Quarter: 2011Q2

REPORT INFORMATION
  Report Type: 
  Country: None (occurrence: None)
  Receive Date: 20110520
  Receipt Date: 20110513
  Transmission Date: 20111010
  Serious: Yes (Hospitalization)
  Sender: FDA-Public Use
  Company Number: US-ABBOTT-11P-163-0725602-00

PATIENT
  Sex: Female
  Weight: 104.87 kg

DRUGS (4)
  1. NIASPAN [Suspect]
     Indication: BLOOD CHOLESTEROL INCREASED
     Dates: start: 20100301, end: 20100701
  2. NIASPAN [Suspect]
     Dates: end: 20100701
  3. AMLODIPINE [Concomitant]
     Indication: HYPERTENSION
  4. ADVIL LIQUI-GELS [Concomitant]
     Indication: PAIN

REACTIONS (6)
  - MUSCULOSKELETAL PAIN [None]
  - BREAST CANCER [None]
  - DRUG INEFFECTIVE [None]
  - MUSCLE DISORDER [None]
  - MUSCULOSKELETAL STIFFNESS [None]
  - ABASIA [None]
